FAERS Safety Report 16790870 (Version 1)
Quarter: 2019Q3

REPORT INFORMATION
  Report Type: Spontaneous
  Country: FR (occurrence: FR)
  Receive Date: 20190910
  Receipt Date: 20190910
  Transmission Date: 20191005
  Serious: Yes (Hospitalization)
  Sender: FDA-Public Use
  Company Number: FR-MYLANLABS-2019M1084129

PATIENT
  Age: 15 Year
  Sex: Female

DRUGS (5)
  1. PERFALGAN [Suspect]
     Active Substance: ACETAMINOPHEN
     Indication: PROPHYLAXIS
     Dosage: 1 DOSAGE FORM, TOTAL
     Route: 042
     Dates: start: 20190321, end: 20190321
  2. VANCOMYCIN [Suspect]
     Active Substance: VANCOMYCIN
     Indication: PROPHYLAXIS
     Dosage: 2250 MILLIGRAM, TOTAL
     Route: 042
     Dates: start: 20190321, end: 20190321
  3. BUPIVACAINE. [Concomitant]
     Active Substance: BUPIVACAINE
  4. LIDOCAINE. [Concomitant]
     Active Substance: LIDOCAINE
  5. ACUPAN [Suspect]
     Active Substance: NEFOPAM HYDROCHLORIDE
     Indication: PRODUCT USED FOR UNKNOWN INDICATION
     Dosage: 1 DOSAGE FORM, TOTAL
     Route: 042
     Dates: start: 20190321, end: 20190321

REACTIONS (6)
  - Hypersensitivity [Recovered/Resolved]
  - Erythema [Recovered/Resolved]
  - Tachycardia [Recovered/Resolved]
  - Abdominal pain [Recovered/Resolved]
  - Hypotension [Recovered/Resolved]
  - Pruritus [Recovered/Resolved]

NARRATIVE: CASE EVENT DATE: 20190321
